FAERS Safety Report 13385472 (Version 1)
Quarter: 2017Q1

REPORT INFORMATION
  Report Type: Report from Study
  Country: GB (occurrence: GB)
  Receive Date: 20170330
  Receipt Date: 20170330
  Transmission Date: 20170429
  Serious: Yes (Hospitalization)
  Sender: FDA-Public Use
  Company Number: GB-ROCHE-1865504

PATIENT
  Age: 47 Year
  Sex: Male
  Weight: 84.1 kg

DRUGS (4)
  1. COTRIMOXAZOLE [Concomitant]
     Active Substance: SULFAMETHOXAZOLE\TRIMETHOPRIM
     Route: 065
     Dates: end: 20161013
  2. LANSOPRAZOLE. [Concomitant]
     Active Substance: LANSOPRAZOLE
  3. OBINUTUZUMAB [Suspect]
     Active Substance: OBINUTUZUMAB
     Indication: FOLLICLE CENTRE LYMPHOMA, FOLLICULAR GRADE I, II, III
     Dosage: DATE OF LAST DOSE PRIOR TO SAE: 21/SEP/2016 CYCLE 1 (28 DAY CYCLES); DAYS 1, 8, 15 AND 22
     Route: 042
     Dates: start: 20160309, end: 20160921
  4. DUVELISIB [Suspect]
     Active Substance: DUVELISIB
     Indication: FOLLICLE CENTRE LYMPHOMA, FOLLICULAR GRADE I, II, III
     Dosage: 28-DAY CYCLES
     Route: 048
     Dates: start: 20160309, end: 20161013

REACTIONS (1)
  - Odynophagia [Recovered/Resolved]

NARRATIVE: CASE EVENT DATE: 20161006
